FAERS Safety Report 6724940-3 (Version None)
Quarter: 2010Q2

REPORT INFORMATION
  Report Type: 
  Country: None (occurrence: None)
  Receive Date: 20100514
  Receipt Date: 20100507
  Transmission Date: 20101027
  Serious: Yes (Hospitalization)
  Sender: FDA-Public Use
  Company Number: 2010BI006190

PATIENT
  Age: 57 Year
  Sex: Male

DRUGS (1)
  1. TYSABRI [Suspect]
     Indication: MULTIPLE SCLEROSIS
     Route: 042
     Dates: start: 20090819

REACTIONS (4)
  - EYE SWELLING [None]
  - RHINORRHOEA [None]
  - URETHRAL STENOSIS [None]
  - WHITE BLOOD CELL COUNT INCREASED [None]
